FAERS Safety Report 9168396 (Version 1)
Quarter: 2013Q1

REPORT INFORMATION
  Report Type: Spontaneous
  Country: US (occurrence: US)
  Receive Date: 20130318
  Receipt Date: 20130318
  Transmission Date: 20140127
  Serious: No
  Sender: FDA-Public Use
  Company Number: US-009507513-1303USA007128

PATIENT
  Sex: 0

DRUGS (1)
  1. PEGINTRON [Suspect]
     Dosage: 120 MICROGRAM, QW

REACTIONS (3)
  - Incorrect product storage [Unknown]
  - Circumstance or information capable of leading to medication error [Unknown]
  - No adverse event [Unknown]
